FAERS Safety Report 9159788 (Version 1)
Quarter: 2013Q1

REPORT INFORMATION
  Report Type: Spontaneous
  Country: US (occurrence: US)
  Receive Date: 20130313
  Receipt Date: 20130313
  Transmission Date: 20140127
  Serious: No
  Sender: FDA-Public Use
  Company Number: US-B.I. PHARMACEUTICALS,INC./RIDGEFIELD-2013-BI-05642BP

PATIENT
  Age: 59 Year
  Sex: Female

DRUGS (11)
  1. TRADJENTA [Suspect]
     Indication: DIABETES MELLITUS
     Dosage: 5 MG
     Route: 048
     Dates: start: 20130227
  2. MINOCYCLINE [Concomitant]
     Indication: ROSACEA
     Dosage: 50 MG
     Route: 048
  3. METFORMIN [Concomitant]
     Indication: DIABETES MELLITUS
     Dosage: 2000 MG
     Route: 048
  4. GLIPIZIDE [Concomitant]
     Indication: DIABETES MELLITUS
     Dosage: 15 MG
     Route: 048
  5. CHROMIUM PICCOLINATE [Concomitant]
     Indication: WEIGHT CONTROL
     Dosage: 400 MCG
     Route: 048
  6. BLACK COHOSH [Concomitant]
     Indication: HOT FLUSH
     Dosage: 40 MG
     Route: 048
  7. CENTRUM MULTIVITAMIN [Concomitant]
     Indication: PROPHYLAXIS
  8. BYDUREON [Concomitant]
     Indication: DIABETES MELLITUS
     Dosage: 0.7143 MG
     Route: 058
  9. FENOFIBRATE [Concomitant]
     Indication: BLOOD CHOLESTEROL INCREASED
     Dosage: 145 MG
     Route: 048
  10. RAMIPRIL [Concomitant]
     Indication: HYPERTENSION
     Dosage: 5 MG
     Route: 048
  11. VITAMIN C [Concomitant]
     Indication: PROPHYLAXIS
     Dosage: 250 MG
     Route: 048

REACTIONS (10)
  - Tremor [Recovered/Resolved]
  - Nausea [Not Recovered/Not Resolved]
  - Vomiting [Recovered/Resolved]
  - Dysgeusia [Not Recovered/Not Resolved]
  - Blood glucose decreased [Not Recovered/Not Resolved]
  - Eructation [Not Recovered/Not Resolved]
  - Hyperhidrosis [Recovered/Resolved]
  - Blood pressure diastolic increased [Not Recovered/Not Resolved]
  - Heart rate increased [Not Recovered/Not Resolved]
  - Blood pressure systolic increased [Not Recovered/Not Resolved]
